FAERS Safety Report 15094131 (Version 3)
Quarter: 2018Q3

REPORT INFORMATION
  Report Type: Spontaneous
  Country: DE (occurrence: DE)
  Receive Date: 20180630
  Receipt Date: 20180928
  Transmission Date: 20181010
  Serious: Yes (Hospitalization, Other)
  Sender: FDA-Public Use
  Company Number: DE-TEVA-2018-DE-916094

PATIENT
  Age: 61 Year
  Sex: Male

DRUGS (6)
  1. SEROQUEL [Suspect]
     Active Substance: QUETIAPINE FUMARATE
     Indication: PRODUCT USED FOR UNKNOWN INDICATION
     Dosage: 100 MILLIGRAM DAILY; 100 MG, UNK
     Route: 048
     Dates: start: 20161231, end: 20170103
  2. ARIPIPRAZOLE. [Suspect]
     Active Substance: ARIPIPRAZOLE
     Indication: PRODUCT USED FOR UNKNOWN INDICATION
     Dosage: 5 MILLIGRAM DAILY; DAILY DOSE: 5 MG MILLIGRAM(S) EVERY DAY
     Route: 048
  3. CIATYL?Z ACUPHASE [Suspect]
     Active Substance: ZUCLOPENTHIXOL ACETATE
     Dosage: 150 MILLIGRAM DAILY; DAILY DOSE: 150 MG MILLIGRAM(S) EVERY DAY
     Route: 030
     Dates: start: 20170107
  4. SEROQUEL [Suspect]
     Active Substance: QUETIAPINE FUMARATE
     Indication: PRODUCT USED FOR UNKNOWN INDICATION
     Dosage: 50 MG, UNK
     Route: 048
     Dates: start: 20161228, end: 20161230
  5. SEROQUEL [Suspect]
     Active Substance: QUETIAPINE FUMARATE
     Dosage: 200 MILLIGRAM DAILY; 200 MG, QD
     Route: 048
     Dates: start: 20170104
  6. QUILONUM RETARD [Suspect]
     Active Substance: LITHIUM CARBONATE
     Dosage: 1125 MILLIGRAM DAILY; 1125 MG, UNK
     Route: 048

REACTIONS (12)
  - Movement disorder [Unknown]
  - Underdose [Unknown]
  - Akathisia [Unknown]
  - Extrapyramidal disorder [Unknown]
  - Dysgraphia [Unknown]
  - Feeding disorder [Unknown]
  - Hypokinesia [Unknown]
  - Compulsions [Unknown]
  - Chills [Unknown]
  - Restlessness [Unknown]
  - Aphasia [Unknown]
  - Dyskinesia [Recovered/Resolved]

NARRATIVE: CASE EVENT DATE: 20170112
